FAERS Safety Report 15651327 (Version 1)
Quarter: 2018Q4

REPORT INFORMATION
  Report Type: Spontaneous
  Country: SI (occurrence: SI)
  Receive Date: 20181123
  Receipt Date: 20181123
  Transmission Date: 20190205
  Serious: Yes (Other)
  Sender: FDA-Public Use
  Company Number: SI-AMGEN-SVNSP2018165578

PATIENT
  Age: 50 Year
  Sex: Female

DRUGS (1)
  1. BLINCYTO [Suspect]
     Active Substance: BLINATUMOMAB
     Indication: ACUTE LYMPHOCYTIC LEUKAEMIA RECURRENT
     Dosage: 28 MUG, UNK
     Route: 065

REACTIONS (5)
  - Mean platelet volume decreased [Unknown]
  - Mean cell haemoglobin increased [Unknown]
  - Platelet distribution width decreased [Unknown]
  - Transient ischaemic attack [Unknown]
  - Mean cell haemoglobin concentration increased [Unknown]
